FAERS Safety Report 20610195 (Version 1)
Quarter: 2022Q1

REPORT INFORMATION
  Report Type: Spontaneous
  Country: US (occurrence: US)
  Receive Date: 20220318
  Receipt Date: 20220318
  Transmission Date: 20220424
  Serious: Yes (Hospitalization, Other)
  Sender: FDA-Public Use
  Company Number: US-BIOVITRUM-2022US03693

PATIENT
  Sex: Female

DRUGS (4)
  1. SYNAGIS [Suspect]
     Active Substance: PALIVIZUMAB
     Indication: Respiratory tract malformation
     Route: 030
     Dates: start: 20211126
  2. AUGMENTIN [Concomitant]
     Active Substance: AMOXICILLIN\CLAVULANATE POTASSIUM
  3. SYNAGIS [Suspect]
     Active Substance: PALIVIZUMAB
     Indication: Antiviral prophylaxis
  4. TOBI [Concomitant]
     Active Substance: TOBRAMYCIN

REACTIONS (8)
  - Serratia infection [Unknown]
  - Haemophilus infection [Unknown]
  - Staphylococcal infection [Unknown]
  - Dehydration [Unknown]
  - Diarrhoea [Unknown]
  - Tracheostomy infection [Unknown]
  - Feeding disorder [Unknown]
  - White blood cell count increased [Unknown]
